FAERS Safety Report 7537877-7 (Version None)
Quarter: 2011Q2

REPORT INFORMATION
  Report Type: 
  Country: None (occurrence: None)
  Receive Date: 20110609
  Receipt Date: 20110525
  Transmission Date: 20111010
  Serious: No
  Sender: FDA-Public Use
  Company Number: US-B.I. PHARMACEUTICALS,INC./RIDGEFIELD-2011-BP-14055BP

PATIENT
  Age: 93 Year
  Sex: Female

DRUGS (3)
  1. BENICAR [Concomitant]
     Indication: HYPERTENSION
  2. PRADAXA [Suspect]
     Indication: ATRIAL FIBRILLATION
     Dosage: 300 MG
     Route: 048
     Dates: start: 20110501
  3. VERAPAMIL [Concomitant]
     Indication: HYPERTENSION

REACTIONS (3)
  - ASTHENIA [None]
  - SENSATION OF HEAVINESS [None]
  - DIZZINESS [None]
